FAERS Safety Report 9912551 (Version 1)
Quarter: 2014Q1

REPORT INFORMATION
  Report Type: Spontaneous
  Country: DE (occurrence: None)
  Receive Date: 20140212
  Receipt Date: 20140212
  Transmission Date: 20141002
  Serious: Yes (Other)
  Sender: FDA-Public Use
  Company Number: 1402-0278

PATIENT
  Sex: Male

DRUGS (1)
  1. EYLEA [Suspect]
     Route: 031
     Dates: start: 20140124

REACTIONS (2)
  - Eye infection [None]
  - Eye pain [None]
